FAERS Safety Report 19202149 (Version 2)
Quarter: 2021Q2

REPORT INFORMATION
  Report Type: Spontaneous
  Country: JP (occurrence: JP)
  Receive Date: 20210430
  Receipt Date: 20210607
  Transmission Date: 20210717
  Serious: No
  Sender: FDA-Public Use
  Company Number: JP-CELGENEUS-JPN-20210406844

PATIENT
  Age: 67 Year
  Sex: Male

DRUGS (6)
  1. VIDAZA [Suspect]
     Active Substance: AZACITIDINE
     Indication: ACUTE MYELOID LEUKAEMIA
     Route: 065
     Dates: start: 20210316, end: 20210418
  2. VENCLEXTA [Concomitant]
     Active Substance: VENETOCLAX
     Route: 065
     Dates: start: 20210513, end: 20210514
  3. VIDAZA [Suspect]
     Active Substance: AZACITIDINE
     Route: 065
     Dates: start: 20210513
  4. VENCLEXTA [Concomitant]
     Active Substance: VENETOCLAX
     Route: 065
     Dates: start: 20210416, end: 20210416
  5. VENCLEXTA [Concomitant]
     Active Substance: VENETOCLAX
     Route: 065
     Dates: start: 20210417, end: 20210418
  6. VENCLEXTA [Concomitant]
     Active Substance: VENETOCLAX
     Indication: ACUTE MYELOID LEUKAEMIA
     Route: 065
     Dates: start: 20210415, end: 20210415

REACTIONS (1)
  - Gastritis [Recovered/Resolved]

NARRATIVE: CASE EVENT DATE: 20210417
